FAERS Safety Report 5209959-6 (Version None)
Quarter: 2006Q4

REPORT INFORMATION
  Report Type: 
  Country: None (occurrence: None)
  Receive Date: 20061129
  Receipt Date: 20050307
  Transmission Date: 20070319
  Serious: Yes (Hospitalization)
  Sender: FDA-Public Use
  Company Number: 2005UW03789

PATIENT
  Age: 69 Year
  Sex: Male

DRUGS (12)
  1. LISINOPRIL [Suspect]
     Dosage: 2.5 MG QD PO
     Route: 048
  2. METOPROLOL SUCCINATE [Suspect]
     Dosage: 25 MG BID PO
     Route: 048
  3. BIVALIRUDIN [Suspect]
     Dosage: 550 MG DAILY IV
     Route: 042
     Dates: start: 20040902, end: 20040902
  4. CARVEDILOL [Suspect]
     Dosage: 2.125 MG PO
     Route: 048
  5. MIRAPEX ^PHARMACIA + UPJOHN^ [Concomitant]
  6. WARFARIN SODIUM [Concomitant]
  7. DOCUSATE [Concomitant]
  8. LOVASTATIN [Concomitant]
  9. VICODIN [Concomitant]
  10. SELEGILINE HCL [Concomitant]
  11. AMANTADINE HCL [Concomitant]
  12. SINEMET [Concomitant]

REACTIONS (4)
  - ELECTROCARDIOGRAM T WAVE INVERSION [None]
  - VENTRICULAR DYSFUNCTION [None]
  - VENTRICULAR TACHYCARDIA [None]
  - VERTIGO [None]
